FAERS Safety Report 24429295 (Version 1)
Quarter: 2024Q4

REPORT INFORMATION
  Report Type: Spontaneous
  Country: US (occurrence: US)
  Receive Date: 20241011
  Receipt Date: 20241011
  Transmission Date: 20250115
  Serious: No
  Sender: TEVA
  Company Number: US-TEVA-VS-3246865

PATIENT
  Age: 42 Year
  Sex: Male

DRUGS (1)
  1. CLONAZEPAM [Suspect]
     Active Substance: CLONAZEPAM
     Indication: Anxiety
     Dosage: 0.5 - 1 MG AS NEEDED (APPROXIMATELY 8 YEARS AGO)
     Route: 065

REACTIONS (2)
  - Product prescribing issue [Unknown]
  - Drug ineffective [Unknown]
